FAERS Safety Report 8587239-9 (Version None)
Quarter: 2012Q3

REPORT INFORMATION
  Report Type: 
  Country: None (occurrence: None)
  Receive Date: 20120810
  Receipt Date: 20111223
  Transmission Date: 20120928
  Serious: No
  Sender: FDA-Public Use
  Company Number: US-ASTRAZENECA-2011SE51133

PATIENT
  Age: 65 Year
  Sex: Female
  Weight: 59.4 kg

DRUGS (7)
  1. ARIMIDEX [Suspect]
     Route: 048
  2. ARIMIDEX [Suspect]
     Route: 048
  3. TYLENOL W/ CODEINE NO. 3 [Concomitant]
     Indication: PAIN
  4. ARIMIDEX [Suspect]
     Indication: BREAST CANCER
     Route: 048
  5. ARIMIDEX [Suspect]
     Route: 048
     Dates: start: 20100901, end: 20110101
  6. SERTALINE [Concomitant]
     Indication: DEPRESSION
  7. LISINOPRIL [Concomitant]
     Indication: HYPERTENSION

REACTIONS (6)
  - DIZZINESS [None]
  - FATIGUE [None]
  - WEIGHT DECREASED [None]
  - NAUSEA [None]
  - DECREASED APPETITE [None]
  - MALAISE [None]
